FAERS Safety Report 8862888 (Version 2)
Quarter: 2014Q1

REPORT INFORMATION
  Report Type: Report from Study
  Country: JP (occurrence: JP)
  Receive Date: 20121026
  Receipt Date: 20140213
  Transmission Date: 20141002
  Serious: Yes (Other)
  Sender: FDA-Public Use
  Company Number: JP-VERTEX PHARMACEUTICAL INC.-AE-2012-004057

PATIENT
  Age: 59 Year
  Sex: Male

DRUGS (20)
  1. TELAVIC [Suspect]
     Indication: HEPATITIS C
     Route: 048
     Dates: start: 20120306, end: 20120315
  2. PEGINTERFERON [Suspect]
     Indication: HEPATITIS C
     Route: 051
     Dates: start: 20120306, end: 20120313
  3. RIBAVIRIN [Suspect]
     Indication: HEPATITIS C
     Dosage: 800 MG, QD
     Route: 048
     Dates: start: 20120306, end: 20120309
  4. RIBAVIRIN [Suspect]
     Dosage: 600 MG, QD
     Route: 048
     Dates: start: 20120310, end: 20120315
  5. CALONAL [Concomitant]
     Dosage: 2 DF, UNK
     Route: 048
     Dates: start: 20120320
  6. DEPAS [Concomitant]
     Dosage: 1 MG, UNK
     Route: 048
  7. CARNACULIN [Concomitant]
     Dosage: 3 DF, UNK
     Route: 048
  8. XALATAN [Concomitant]
     Dosage: 2.5 DF, UNK
     Route: 047
  9. VOLTAREN [Concomitant]
     Dosage: 50 MG, UNK
     Route: 048
     Dates: end: 20120314
  10. MUCOSTA [Concomitant]
     Dosage: 2 DF, UNK
     Route: 048
  11. HALCION [Concomitant]
     Dosage: 0.25 DF, UNK
     Route: 048
  12. OLMETEC [Concomitant]
     Dosage: 1 DF, UNK
     Route: 048
  13. LOXONIN [Concomitant]
     Dosage: UNK
     Route: 061
  14. ISOTONIC SODIUM CHLORIDE SOLUTION [Concomitant]
     Route: 042
     Dates: start: 20120314, end: 20120315
  15. ISOTONIC SODIUM CHLORIDE SOLUTION [Concomitant]
     Route: 042
     Dates: start: 20120316, end: 20120316
  16. ISOTONIC SODIUM CHLORIDE SOLUTION [Concomitant]
     Route: 042
     Dates: start: 20120318, end: 20120318
  17. SERENACE [Concomitant]
     Route: 042
     Dates: start: 20120314, end: 20120315
  18. SERENACE [Concomitant]
     Route: 042
     Dates: start: 20120316, end: 20120316
  19. SERENACE [Concomitant]
     Dosage: 1 DF, UNK
     Route: 042
     Dates: start: 20120318, end: 20120318
  20. HEPAFLUSH [Concomitant]
     Route: 042
     Dates: start: 20120316, end: 20120321

REACTIONS (2)
  - Renal tubular necrosis [Recovering/Resolving]
  - Somnolence [Recovering/Resolving]
